FAERS Safety Report 14522835 (Version 2)
Quarter: 2019Q1

REPORT INFORMATION
  Report Type: Report from Study
  Country: US (occurrence: US)
  Receive Date: 20180212
  Receipt Date: 20190215
  Transmission Date: 20190417
  Serious: Yes (Hospitalization, Other)
  Sender: FDA-Public Use
  Company Number: US-AMAG PHARMACEUTICALS, INC.-AMAG201703631

PATIENT

DRUGS (4)
  1. MAKENA [Suspect]
     Active Substance: HYDROXYPROGESTERONE CAPROATE
     Indication: PREMATURE DELIVERY
     Dosage: 250 MG/ML, WEEKLY
     Route: 030
     Dates: start: 20170815, end: 20171113
  2. ASPIRIN. [Concomitant]
     Active Substance: ASPIRIN
     Indication: PREMATURE SEPARATION OF PLACENTA
  3. PRENATAL VITAMINS [Concomitant]
     Active Substance: VITAMINS
     Indication: PREGNANCY
     Dosage: UNK
     Route: 065
     Dates: start: 20160113
  4. ASPIRIN. [Concomitant]
     Active Substance: ASPIRIN
     Indication: PREMATURE DELIVERY
     Dosage: 81 MG, QD
     Route: 065
     Dates: start: 20170727, end: 20171117

REACTIONS (2)
  - Premature delivery [Recovered/Resolved]
  - Oligohydramnios [Recovered/Resolved]

NARRATIVE: CASE EVENT DATE: 20171113
